FAERS Safety Report 15982781 (Version 1)
Quarter: 2019Q1

REPORT INFORMATION
  Report Type: Spontaneous
  Country: DE (occurrence: DE)
  Receive Date: 20190219
  Receipt Date: 20190219
  Transmission Date: 20190418
  Serious: Yes (Congenital Anomaly, Other)
  Sender: FDA-Public Use
  Company Number: DE-PFIZER INC-2019065830

PATIENT
  Age: 1 Day
  Sex: Male
  Weight: 2 kg

DRUGS (6)
  1. TAVOR (LORAZEPAM) [Suspect]
     Active Substance: LORAZEPAM
     Indication: SLEEP DISORDER
     Dosage: 1 MG, DAILY (1 [MG/D]/ IF REQUIRED 26.1. - 32.2. GESTATIONAL WEEK)
     Route: 064
     Dates: start: 20180219, end: 20180403
  2. PAROXETINE. [Suspect]
     Active Substance: PAROXETINE
     Indication: OBSESSIVE THOUGHTS
     Dosage: UNK (5-10MG/D UNTIL WEEK 7, WEEK 7-29 NO EXPOSURE, FROM WEEK 29 20-40 MG/D
     Route: 064
  3. PROGESTERON [Concomitant]
     Active Substance: PROGESTERONE
     Indication: PREMATURE LABOUR
     Dosage: 200 MG, 1X/DAY (200 [MG/D ] 29. - 33.3. GESTATIONAL WEEK)
     Route: 064
  4. FOLIO FORTE [Concomitant]
     Active Substance: FOLIC ACID\VITAMINS
     Indication: PROPHYLAXIS OF NEURAL TUBE DEFECT
     Dosage: 0.8 MG, 1X/DAY
     Route: 064
     Dates: start: 20170820, end: 20180411
  5. SERTRALINE [Concomitant]
     Active Substance: SERTRALINE HYDROCHLORIDE
     Indication: ANXIETY DISORDER
     Dosage: 50 [MG/D ]/ INITIAL 25MG/D, THE INCREASED TO 50MG/D 27.1. - 29. GESTATIONAL WEEK
     Route: 064
     Dates: start: 20180226, end: 20180311
  6. L-THYROXIN [LEVOTHYROXINE SODIUM] [Concomitant]
     Indication: HYPOTHYROIDISM
     Dosage: 75 UG, 1X/DAY (10. - 33.3. GESTATIONAL WEEK)
     Route: 064

REACTIONS (6)
  - Congenital umbilical hernia [Recovered/Resolved]
  - Congenital inguinal hernia [Recovered/Resolved]
  - Maternal exposure during pregnancy [Unknown]
  - Premature baby [Recovered/Resolved]
  - Respiratory disorder neonatal [Recovered/Resolved]
  - Maternal drugs affecting foetus [None]

NARRATIVE: CASE EVENT DATE: 20180411
